FAERS Safety Report 7720683-8 (Version None)
Quarter: 2011Q3

REPORT INFORMATION
  Report Type: 
  Country: None (occurrence: None)
  Receive Date: 20110831
  Receipt Date: 20110819
  Transmission Date: 20111222
  Serious: No
  Sender: FDA-Public Use
  Company Number: US-B.I. PHARMACEUTICALS,INC./RIDGEFIELD-2011-BP-20398BP

PATIENT
  Sex: Female

DRUGS (4)
  1. NEXIUM [Concomitant]
     Indication: GASTROOESOPHAGEAL REFLUX DISEASE
  2. FLUTICASONE NASAL SPRAY [Concomitant]
     Indication: HYPERSENSITIVITY
  3. SPIRIVA [Suspect]
     Indication: ASTHMA
     Dosage: 18 MCG
     Route: 055
     Dates: start: 20110616, end: 20110816
  4. ZANTAC [Concomitant]
     Indication: GASTROOESOPHAGEAL REFLUX DISEASE
     Dates: start: 20110616

REACTIONS (3)
  - DYSPNOEA [None]
  - COUGH [None]
  - CHEST DISCOMFORT [None]
